FAERS Safety Report 25236853 (Version 4)
Quarter: 2025Q2

REPORT INFORMATION
  Report Type: Report from Study
  Country: US (occurrence: US)
  Receive Date: 20250424
  Receipt Date: 20250620
  Transmission Date: 20250717
  Serious: Yes (Other)
  Sender: MALLINCKRODT
  Company Number: US-MALLINCKRODT-MNK202502292

PATIENT
  Sex: Female

DRUGS (2)
  1. CORTICOTROPIN [Suspect]
     Active Substance: CORTICOTROPIN
     Indication: Multiple sclerosis
     Dosage: 40 UNITS
     Route: 058
     Dates: start: 20111210
  2. CORTICOTROPIN [Suspect]
     Active Substance: CORTICOTROPIN
     Dates: start: 20141210

REACTIONS (6)
  - Diabetes mellitus [Unknown]
  - Exostosis [Not Recovered/Not Resolved]
  - Multiple sclerosis [Unknown]
  - Ligament rupture [Not Recovered/Not Resolved]
  - Nerve compression [Not Recovered/Not Resolved]
  - Stress [Unknown]

NARRATIVE: CASE EVENT DATE: 20110101
